FAERS Safety Report 19977705 (Version 1)
Quarter: 2021Q4

REPORT INFORMATION
  Report Type: Report from Study
  Country: FR (occurrence: FR)
  Receive Date: 20211020
  Receipt Date: 20211020
  Transmission Date: 20220303
  Serious: Yes (Life-Threatening)
  Sender: FDA-Public Use
  Company Number: FR-SERVIER-S20008256

PATIENT

DRUGS (8)
  1. PEGASPARGASE [Suspect]
     Active Substance: PEGASPARGASE
     Indication: Acute lymphocytic leukaemia
     Dosage: 3150 IU, D15 D43
     Route: 042
     Dates: start: 20191204, end: 20200110
  2. TN UNSPECIFIED [Concomitant]
     Indication: Acute lymphocytic leukaemia
     Dosage: 1260 MG D1, D29
     Route: 042
     Dates: start: 20191120, end: 20191227
  3. TN UNSPECIFIED [Concomitant]
     Indication: Acute lymphocytic leukaemia
     Dosage: 1.9 MG, D15, D22, D43
     Route: 042
     Dates: start: 20191204, end: 20200110
  4. TN UNSPECIFIED [Concomitant]
     Indication: Acute lymphocytic leukaemia
     Dosage: 75 MG, D1-D14, D29-D42
     Route: 048
     Dates: start: 20191120, end: 20200109
  5. TN UNSPECIFIED [Concomitant]
     Indication: Acute lymphocytic leukaemia
     Dosage: 88 MG, D3 TO D6, D10 TO D13, D31 TO D34
     Route: 042
     Dates: start: 20191122, end: 20200108
  6. TN UNSPECIFIED [Concomitant]
     Dosage: 30 MG, D3, D16, D31, D46
     Route: 037
     Dates: start: 20191123, end: 20200113
  7. TN UNSPECIFIED [Concomitant]
     Indication: Acute lymphocytic leukaemia
     Dosage: 15 MG D3, D16, D31, D46
     Route: 037
     Dates: start: 20191123, end: 20200113
  8. TN UNSPECIFIED [Concomitant]
     Indication: Acute lymphocytic leukaemia
     Dosage: 15 MG D3, D16, D31, D46
     Route: 037
     Dates: start: 20191123, end: 20200113

REACTIONS (1)
  - Aspergillus infection [Recovered/Resolved]

NARRATIVE: CASE EVENT DATE: 20200131
